FAERS Safety Report 11793198 (Version 1)
Quarter: 2015Q4

REPORT INFORMATION
  Report Type: Spontaneous
  Country: None (occurrence: None)
  Receive Date: 20151201
  Receipt Date: 20151201
  Transmission Date: 20160305
  Serious: Yes (Other)
  Sender: FDA-Public Use
  Company Number: None

PATIENT
  Age: 57 Year
  Sex: Female

DRUGS (2)
  1. LEVOTHYROXINE. [Suspect]
     Active Substance: LEVOTHYROXINE
     Indication: RASH
     Dosage: Q48H
     Route: 048
     Dates: start: 201403, end: 201511
  2. LEVOTHYROXINE. [Suspect]
     Active Substance: LEVOTHYROXINE
     Indication: RASH
     Dosage: Q48H
     Route: 048
     Dates: start: 201501

REACTIONS (2)
  - Product substitution issue [None]
  - Rash pruritic [None]

NARRATIVE: CASE EVENT DATE: 20151014
